FAERS Safety Report 20460815 (Version 1)
Quarter: 2022Q1

REPORT INFORMATION
  Report Type: Report from Study
  Country: US (occurrence: US)
  Receive Date: 20220211
  Receipt Date: 20220211
  Transmission Date: 20220423
  Serious: Yes (Death, Hospitalization)
  Sender: FDA-Public Use
  Company Number: US-BAYER-2022A001537

PATIENT
  Age: 67 Year
  Sex: Male
  Weight: 102.95 kg

DRUGS (5)
  1. ADEMPAS [Suspect]
     Active Substance: RIOCIGUAT
     Indication: Pulmonary arterial hypertension
     Dosage: UNK
     Dates: start: 20210708
  2. ADEMPAS [Suspect]
     Active Substance: RIOCIGUAT
     Indication: Pulmonary arterial hypertension
     Dosage: 2.5 MG, TID
     Route: 048
  3. XARELTO [Concomitant]
     Active Substance: RIVAROXABAN
  4. UPTRAVI [Concomitant]
     Active Substance: SELEXIPAG
  5. DILTIAZEM [Concomitant]
     Active Substance: DILTIAZEM

REACTIONS (2)
  - Arthritis infective [None]
  - Death [Fatal]

NARRATIVE: CASE EVENT DATE: 20220102
